FAERS Safety Report 13099386 (Version 2)
Quarter: 2017Q1

REPORT INFORMATION
  Report Type: Spontaneous
  Country: ES (occurrence: ES)
  Receive Date: 20170109
  Receipt Date: 20170126
  Transmission Date: 20170428
  Serious: Yes (Other)
  Sender: FDA-Public Use
  Company Number: ES-GILEAD-2017-0252209

PATIENT
  Age: 45 Year
  Sex: Male
  Weight: 88 kg

DRUGS (8)
  1. RALTEGRAVIR. [Concomitant]
     Active Substance: RALTEGRAVIR
     Dosage: 400 MG, UNK
     Route: 048
     Dates: start: 20151209, end: 20160323
  2. LAMIVUDINA [Concomitant]
     Active Substance: LAMIVUDINE
     Route: 048
     Dates: start: 20151209, end: 20160323
  3. GENVOYA [Concomitant]
     Active Substance: COBICISTAT\ELVITEGRAVIR\EMTRICITABINE\TENOFOVIR ALAFENAMIDE FUMARATE
     Indication: PRODUCT USED FOR UNKNOWN INDICATION
     Dosage: UNK
     Route: 065
     Dates: start: 20161019
  4. EMTRICITABINA [Concomitant]
     Active Substance: EMTRICITABINE
     Dosage: 200 MG, UNK
     Route: 048
     Dates: start: 2016, end: 2016
  5. TENOFOVIR ALAFENAMIDE [Concomitant]
     Active Substance: TENOFOVIR ALAFENAMIDE
     Dosage: 300 MG, UNK
     Route: 048
     Dates: start: 20160323, end: 20161019
  6. ABACAVIR. [Concomitant]
     Active Substance: ABACAVIR
     Dosage: 600 MG, UNK
     Route: 048
     Dates: start: 20151209, end: 20160323
  7. HARVONI [Suspect]
     Active Substance: LEDIPASVIR\SOFOSBUVIR
     Indication: HEPATITIS C
     Dosage: 1 DF, UNK
     Route: 048
     Dates: start: 20151218, end: 20160314
  8. ATAZANAVIR [Concomitant]
     Active Substance: ATAZANAVIR
     Dosage: 300 MG, UNK
     Route: 048
     Dates: start: 20160323, end: 20161019

REACTIONS (2)
  - Proteinuria [Not Recovered/Not Resolved]
  - Nephrotic syndrome [Not Recovered/Not Resolved]

NARRATIVE: CASE EVENT DATE: 201609
